FAERS Safety Report 8293818-9 (Version None)
Quarter: 2012Q2

REPORT INFORMATION
  Report Type: 
  Country: None (occurrence: None)
  Receive Date: 20120418
  Receipt Date: 20120409
  Transmission Date: 20120825
  Serious: Yes (Hospitalization)
  Sender: FDA-Public Use
  Company Number: US-CELGENEUS-163-21880-10071161

PATIENT
  Sex: Male
  Weight: 77.3 kg

DRUGS (19)
  1. VIDAZA [Suspect]
     Dosage: 75 MILLIGRAM/SQ. METER
     Route: 058
     Dates: start: 20100517, end: 20100704
  2. ANTARA (MICRONIZED) [Concomitant]
     Dosage: 130 MILLIGRAM
     Route: 065
  3. GEMFIBROZIL [Concomitant]
     Dosage: 600 MILLIGRAM
     Route: 048
  4. ATORVASTATIN [Concomitant]
     Dosage: 10 MILLIGRAM
     Route: 048
  5. AVANDIA [Concomitant]
     Dosage: 4 MILLIGRAM
     Route: 065
  6. FLEXERIL [Concomitant]
     Dosage: 10 MILLIGRAM
     Route: 065
  7. METFORMIN HCL [Concomitant]
     Dosage: 1000 MILLIGRAM
     Route: 065
  8. SOLU-MEDROL [Concomitant]
     Dosage: 40 MILLIGRAM
     Route: 041
  9. SOLU-MEDROL [Concomitant]
     Dosage: 1000 MILLIGRAM
     Route: 065
  10. DOCUSATE SODIUM [Concomitant]
     Dosage: 200 MILLIGRAM
     Route: 048
  11. SODIUM CHLORIDE [Concomitant]
     Dosage: 1000 MILLILITER
     Route: 041
  12. SODIUM CHLORIDE [Concomitant]
     Dosage: 40 MILLIGRAM
     Route: 041
  13. REVLIMID [Suspect]
     Dosage: 10 MILLIGRAM
     Route: 048
     Dates: start: 20100517, end: 20100704
  14. LEXAPRO [Concomitant]
     Dosage: 1000 MILLIGRAM
     Route: 065
  15. NOVOLIN R [Concomitant]
     Route: 058
  16. IMDUR [Concomitant]
     Dosage: 30 MILLIGRAM
     Route: 048
  17. METOPROLOL TARTRATE [Concomitant]
     Dosage: 25 MILLIGRAM
     Route: 048
  18. LOPID [Concomitant]
     Dosage: 600 MILLIGRAM
     Route: 065
  19. LISINOPRIL [Concomitant]
     Dosage: 20 MILLIGRAM
     Route: 048

REACTIONS (7)
  - THROMBOCYTOPENIA [None]
  - BACTERAEMIA [None]
  - HYPOMAGNESAEMIA [None]
  - HYPONATRAEMIA [None]
  - DEHYDRATION [None]
  - FEBRILE NEUTROPENIA [None]
  - ANAEMIA [None]
